FAERS Safety Report 4939632-0 (Version None)
Quarter: 2006Q1

REPORT INFORMATION
  Report Type: 
  Country: None (occurrence: None)
  Receive Date: 20060310
  Receipt Date: 20051103
  Transmission Date: 20060701
  Serious: Yes (Hospitalization)
  Sender: FDA-Public Use
  Company Number: US-MERCK-0511USA00805

PATIENT
  Age: 58 Year
  Sex: Male
  Weight: 82 kg

DRUGS (2)
  1. VIOXX [Suspect]
     Indication: ARTHRITIS
     Route: 048
     Dates: start: 20031020, end: 20040902
  2. ALEVE [Concomitant]
     Route: 065

REACTIONS (3)
  - MENTAL DISORDER [None]
  - MYOCARDIAL INFARCTION [None]
  - PAIN [None]
